FAERS Safety Report 25074191 (Version 1)
Quarter: 2025Q1

REPORT INFORMATION
  Report Type: Spontaneous
  Country: US (occurrence: None)
  Receive Date: 20250313
  Receipt Date: 20250313
  Transmission Date: 20250409
  Serious: No
  Sender: FDA-CTU
  Company Number: None

PATIENT
  Age: 41 Year
  Sex: Female
  Weight: 60.75 kg

DRUGS (10)
  1. ACETAZOLAMIDE [Suspect]
     Active Substance: ACETAZOLAMIDE
     Indication: Intraocular pressure increased
     Dates: start: 20250202
  2. Eyedrops [Concomitant]
  3. LATANOPROST [Concomitant]
     Active Substance: LATANOPROST
  4. SIMBRINZA [Concomitant]
     Active Substance: BRIMONIDINE TARTRATE\BRINZOLAMIDE
  5. DORZOLAMIDE [Concomitant]
     Active Substance: DORZOLAMIDE
  6. BRIMONIDINE [Concomitant]
     Active Substance: BRIMONIDINE TARTRATE
  7. TIMOLOL [Concomitant]
     Active Substance: TIMOLOL
  8. MIRENA [Concomitant]
     Active Substance: LEVONORGESTREL
  9. VITAMIN D [Concomitant]
     Active Substance: VITAMIN D NOS
  10. MELATONIN [Concomitant]
     Active Substance: MELATONIN

REACTIONS (6)
  - Visual perseveration [None]
  - Nausea [None]
  - Dyspnoea [None]
  - Paraesthesia [None]
  - Paraesthesia [None]
  - Paraesthesia oral [None]

NARRATIVE: CASE EVENT DATE: 20250206
